FAERS Safety Report 24614615 (Version 2)
Quarter: 2024Q4

REPORT INFORMATION
  Report Type: Spontaneous
  Country: US (occurrence: US)
  Receive Date: 20241113
  Receipt Date: 20241202
  Transmission Date: 20250114
  Serious: No
  Sender: PFIZER
  Company Number: US-PFIZER INC-202400298084

PATIENT
  Age: 57 Year
  Sex: Female

DRUGS (2)
  1. CIBINQO [Suspect]
     Active Substance: ABROCITINIB
     Indication: Lichen planopilaris
     Dosage: 100 MG
     Dates: start: 20241106
  2. CIBINQO [Suspect]
     Active Substance: ABROCITINIB
     Indication: Dermatitis atopic

REACTIONS (2)
  - Nail disorder [Unknown]
  - Drug ineffective [Unknown]
